FAERS Safety Report 5453790-3 (Version None)
Quarter: 2007Q3

REPORT INFORMATION
  Report Type: 
  Country: None (occurrence: None)
  Receive Date: 20070917
  Receipt Date: 20070904
  Transmission Date: 20080115
  Serious: Yes (Hospitalization, Other)
  Sender: FDA-Public Use
  Company Number: US-MERCK-0709USA00438

PATIENT
  Age: 61 Year
  Sex: Female

DRUGS (9)
  1. FOSAMAX [Suspect]
     Route: 048
     Dates: end: 20061201
  2. ADVAIR DISKUS 100/50 [Suspect]
     Indication: ASTHMA
     Route: 048
     Dates: start: 19960101, end: 20061201
  3. ADVAIR DISKUS 100/50 [Suspect]
     Route: 048
  4. COREG [Suspect]
     Indication: MYOCARDIAL INFARCTION
     Route: 048
     Dates: start: 20040801, end: 20061201
  5. LISINOPRIL [Concomitant]
     Route: 048
     Dates: end: 20061201
  6. ASPIRIN [Concomitant]
     Route: 065
  7. [THERAPY UNSPECIFIED] [Concomitant]
     Route: 065
     Dates: end: 20061201
  8. TRILEPTAL [Concomitant]
     Route: 065
     Dates: end: 20061201
  9. PHENOBARBITAL [Concomitant]
     Route: 065
     Dates: end: 20061201

REACTIONS (17)
  - BEDRIDDEN [None]
  - BLOOD SODIUM DECREASED [None]
  - CARDIAC DISORDER [None]
  - CARDIAC FLUTTER [None]
  - CARDIAC MURMUR [None]
  - CATARACT [None]
  - CHEST PAIN [None]
  - DEHYDRATION [None]
  - EATING DISORDER [None]
  - FOOT FRACTURE [None]
  - GASTRIC DISORDER [None]
  - HAND FRACTURE [None]
  - INJURY [None]
  - OESOPHAGEAL DISORDER [None]
  - PALPITATIONS [None]
  - SKIN LACERATION [None]
  - VOMITING [None]
